FAERS Safety Report 6182976-8 (Version None)
Quarter: 2009Q2

REPORT INFORMATION
  Report Type: 
  Country: None (occurrence: None)
  Receive Date: 20090507
  Receipt Date: 20090429
  Transmission Date: 20091009
  Serious: Yes (Other)
  Sender: FDA-Public Use
  Company Number: PHEH2009US04232

PATIENT
  Sex: Female
  Weight: 72.562 kg

DRUGS (1)
  1. RECLAST [Suspect]
     Indication: OSTEOPOROSIS
     Dosage: 5 MG, ONCE YEARLY
     Dates: start: 20090422, end: 20090422

REACTIONS (6)
  - DIZZINESS [None]
  - HYPERHIDROSIS [None]
  - NAUSEA [None]
  - PALLOR [None]
  - SYNCOPE [None]
  - VOMITING [None]
